FAERS Safety Report 5661541-2 (Version None)
Quarter: 2008Q1

REPORT INFORMATION
  Report Type: 
  Country: None (occurrence: None)
  Receive Date: 20080312
  Receipt Date: 20080306
  Transmission Date: 20080703
  Serious: Yes (Hospitalization, Other)
  Sender: FDA-Public Use
  Company Number: PHNU2008DE00809

PATIENT
  Sex: Female

DRUGS (2)
  1. BELOC ZOK [Concomitant]
  2. DIOVAN HCT [Suspect]
     Indication: HYPERTENSION
     Dosage: UNK, UNK
     Dates: start: 20080101

REACTIONS (3)
  - CHEST PAIN [None]
  - DYSPNOEA [None]
  - PLEURISY [None]
